FAERS Safety Report 4606625-2 (Version None)
Quarter: 2005Q2

REPORT INFORMATION
  Report Type: 
  Country: None (occurrence: None)
  Receive Date: 20050223
  Receipt Date: 20040415
  Transmission Date: 20051028
  Serious: Yes (Other)
  Sender: FDA-Public Use
  Company Number: WAES 0404USA01587

PATIENT
  Age: 53 Year
  Sex: Male
  Weight: 101.6057 kg

DRUGS (6)
  1. ZOCOR [Suspect]
     Indication: BLOOD CHOLESTEROL INCREASED
     Dosage: 80 MG/DAILY/PO;  PO
     Route: 048
     Dates: end: 20040101
  2. ZOCOR [Suspect]
     Indication: CORONARY ARTERY DISEASE
     Dosage: 80 MG/DAILY/PO;  PO
     Route: 048
     Dates: end: 20040101
  3. ZOCOR [Suspect]
     Indication: BLOOD CHOLESTEROL INCREASED
     Dosage: 80 MG/DAILY/PO;  PO
     Route: 048
     Dates: start: 20040101, end: 20040301
  4. ZOCOR [Suspect]
     Indication: CORONARY ARTERY DISEASE
     Dosage: 80 MG/DAILY/PO;  PO
     Route: 048
     Dates: start: 20040101, end: 20040301
  5. SYNTHROID [Concomitant]
  6. ASPIRIN [Concomitant]

REACTIONS (3)
  - ECZEMA [None]
  - MYALGIA [None]
  - MYOPATHY [None]
